FAERS Safety Report 8083647-3 (Version None)
Quarter: 2012Q1

REPORT INFORMATION
  Report Type: 
  Country: None (occurrence: None)
  Receive Date: 20120127
  Receipt Date: 20110110
  Transmission Date: 20120608
  Serious: No
  Sender: FDA-Public Use
  Company Number: US-ABBOTT-11P-163-0696654-00

PATIENT
  Sex: Female
  Weight: 53.572 kg

DRUGS (2)
  1. ZYRTEC [Concomitant]
     Indication: HYPERSENSITIVITY
  2. HUMIRA [Suspect]
     Indication: RHEUMATOID ARTHRITIS
     Dates: start: 20091130

REACTIONS (9)
  - URTICARIA [None]
  - OROPHARYNGEAL PAIN [None]
  - PHARYNGITIS [None]
  - THROAT IRRITATION [None]
  - DRUG DOSE OMISSION [None]
  - PHARYNGEAL ERYTHEMA [None]
  - PRURITUS [None]
  - SPUTUM DISCOLOURED [None]
  - OEDEMA PERIPHERAL [None]
